FAERS Safety Report 16821133 (Version 2)
Quarter: 2019Q4

REPORT INFORMATION
  Report Type: Report from Study
  Country: FR (occurrence: FR)
  Receive Date: 20190918
  Receipt Date: 20191002
  Transmission Date: 20200122
  Serious: Yes (Hospitalization)
  Sender: FDA-Public Use
  Company Number: FR-ROCHE-2404021

PATIENT
  Age: 50 Year
  Sex: Female

DRUGS (8)
  1. CEFIXIME. [Concomitant]
     Active Substance: CEFIXIME
     Indication: URINARY TRACT INFECTION
     Route: 048
     Dates: start: 20190211, end: 20190217
  2. COLECALCIFEROL [Concomitant]
     Active Substance: CHOLECALCIFEROL
     Route: 048
  3. OCRELIZUMAB. [Suspect]
     Active Substance: OCRELIZUMAB
     Indication: RELAPSING MULTIPLE SCLEROSIS
     Dosage: DATE OF MOST RECENT DOSE OF OCRELIZUMAB (300 MG) ADMINISTERED PRIOR TO SAE: 21/MAR/2019?AN INITIAL D
     Route: 042
     Dates: start: 20190307
  4. SPASFON [PHLOROGLUCINOL;TRIMETHYLPHLOROGLUCINOL] [Concomitant]
     Active Substance: PHLOROGLUCINOL\1,3,5-TRIMETHOXYBENZENE
     Route: 048
  5. MICROLAX [SODIUM CITRATE;SODIUM LAURYL SULFOACETATE;SORBITOL] [Concomitant]
     Active Substance: SODIUM CITRATE\SODIUM LAURYL SULFOACETATE\SORBITOL
     Route: 048
  6. CEFIXIME. [Concomitant]
     Active Substance: CEFIXIME
     Route: 048
     Dates: start: 201908
  7. SPAGULAX [Concomitant]
     Active Substance: PLANTAGO OVATA SEED
     Route: 065
  8. KARDEGIC [Concomitant]
     Active Substance: ASPIRIN DL-LYSINE
     Route: 048
     Dates: start: 20190623

REACTIONS (1)
  - Chest pain [Recovered/Resolved]

NARRATIVE: CASE EVENT DATE: 20190619
